FAERS Safety Report 10701777 (Version 1)
Quarter: 2015Q1

REPORT INFORMATION
  Report Type: Spontaneous
  Country: US (occurrence: US)
  Receive Date: 20150109
  Receipt Date: 20150109
  Transmission Date: 20150721
  Serious: Yes (Other)
  Sender: FDA-Public Use
  Company Number: US-ASTRAZENECA-2015SE00904

PATIENT
  Age: 38 Year
  Sex: Female

DRUGS (1)
  1. ANASTROZOLE. [Suspect]
     Active Substance: ANASTROZOLE
     Dosage: DAILY
     Route: 048

REACTIONS (1)
  - Breast cancer female [Unknown]
